FAERS Safety Report 23312946 (Version 1)
Quarter: 2023Q4

REPORT INFORMATION
  Report Type: Spontaneous
  Country: GB (occurrence: GB)
  Receive Date: 20231219
  Receipt Date: 20231219
  Transmission Date: 20240109
  Serious: Yes (Other)
  Sender: FDA-Public Use
  Company Number: GB-MHRA-TPP57576933C9995872YC1701966547335

PATIENT
  Age: 46 Year
  Sex: Male
  Weight: 89 kg

DRUGS (5)
  1. SILDENAFIL [Suspect]
     Active Substance: SILDENAFIL
     Indication: Ill-defined disorder
     Dosage: UNK
     Route: 065
     Dates: start: 20231207
  2. ANUSOL NOS [Concomitant]
     Active Substance: BALSAM PERU\BENZYL BENZOATE\BISMUTH HYDROXIDE\BISMUTH SUBGALLATE\HYDROCORTISONE ACETATE\ZINC OXIDE
     Indication: Ill-defined disorder
     Dosage: UNK(1 APPLICATION)
     Route: 065
     Dates: start: 20231123, end: 20231130
  3. IBUPROFEN [Concomitant]
     Active Substance: IBUPROFEN
     Indication: Ill-defined disorder
     Dosage: 2 DOSAGE FORM
     Route: 065
     Dates: start: 20231123, end: 20231123
  4. MICONAZOLE [Concomitant]
     Active Substance: MICONAZOLE
     Indication: Ill-defined disorder
     Dosage: UNK(1 APPLICATION)
     Route: 065
     Dates: start: 20231123, end: 20231130
  5. ACETAMINOPHEN [Concomitant]
     Active Substance: ACETAMINOPHEN
     Indication: Ill-defined disorder
     Dosage: 2 DOSAGE FORM
     Route: 065
     Dates: start: 20231123, end: 20231123

REACTIONS (1)
  - Musculoskeletal stiffness [Recovering/Resolving]

NARRATIVE: CASE EVENT DATE: 20231207
